FAERS Safety Report 5775010-2 (Version None)
Quarter: 2008Q2

REPORT INFORMATION
  Report Type: 
  Country: None (occurrence: None)
  Receive Date: 20080612
  Receipt Date: 20080529
  Transmission Date: 20081010
  Serious: Yes (Other)
  Sender: FDA-Public Use
  Company Number: 2008AL006066

PATIENT
  Age: 70 Year
  Sex: Female

DRUGS (3)
  1. DIGOXIN [Suspect]
     Indication: CARDIAC DISORDER
     Dosage: 0.125MG BID PO
     Route: 048
     Dates: start: 20080407, end: 20080429
  2. ATENOLOL [Concomitant]
  3. ACETAMINOPHEN [Concomitant]

REACTIONS (3)
  - DIZZINESS [None]
  - FALL [None]
  - ROAD TRAFFIC ACCIDENT [None]
